FAERS Safety Report 7544656-3 (Version None)
Quarter: 2011Q2

REPORT INFORMATION
  Report Type: 
  Country: None (occurrence: None)
  Receive Date: 20110614
  Receipt Date: 20110603
  Transmission Date: 20111010
  Serious: Yes (Hospitalization)
  Sender: FDA-Public Use
  Company Number: US-BIOGENIDEC-2011BI017050

PATIENT
  Age: 26 Year
  Sex: Female

DRUGS (4)
  1. TYSABRI [Suspect]
     Indication: MULTIPLE SCLEROSIS
     Route: 042
     Dates: start: 20101202
  2. ALBUTEROL SULFATE AUTOHALER [Concomitant]
     Indication: WHEEZING
  3. NEURONTIN [Concomitant]
  4. ALLEGRA [Concomitant]
     Indication: PREMEDICATION

REACTIONS (1)
  - MULTIPLE SCLEROSIS RELAPSE [None]
